FAERS Safety Report 15952407 (Version 1)
Quarter: 2019Q1

REPORT INFORMATION
  Report Type: Spontaneous
  Country: US (occurrence: US)
  Receive Date: 20190211
  Receipt Date: 20190211
  Transmission Date: 20190417
  Serious: Yes (Other)
  Sender: FDA-Public Use
  Company Number: US-AMREGENT-20190208

PATIENT
  Sex: Female

DRUGS (1)
  1. INJECTAFER [Suspect]
     Active Substance: FERRIC CARBOXYMALTOSE
     Dosage: UKNOWN 4 DOSES SEPARATE BY 7 D
     Route: 065

REACTIONS (2)
  - Liver iron concentration increased [Unknown]
  - Intentional product use issue [Unknown]
